FAERS Safety Report 6936030-5 (Version None)
Quarter: 2010Q3

REPORT INFORMATION
  Report Type: 
  Country: None (occurrence: None)
  Receive Date: 20100816
  Receipt Date: 20090727
  Transmission Date: 20110219
  Serious: Yes (Hospitalization, Other)
  Sender: FDA-Public Use
  Company Number: US-WYE-H10347209

PATIENT
  Age: 23 Year
  Sex: Female
  Weight: 60.38 kg

DRUGS (2)
  1. TYGACIL [Suspect]
     Indication: PRODUCT USED FOR UNKNOWN INDICATION
     Dosage: INTRAVENOUS
     Route: 042
     Dates: start: 20090611, end: 20090624
  2. FERROUS SULFATE TAB [Concomitant]

REACTIONS (1)
  - PANCREATITIS [None]
